FAERS Safety Report 12680614 (Version 8)
Quarter: 2017Q1

REPORT INFORMATION
  Report Type: Spontaneous
  Country: BR (occurrence: BR)
  Receive Date: 20160824
  Receipt Date: 20170117
  Transmission Date: 20170428
  Serious: Yes (Hospitalization, Other)
  Sender: FDA-Public Use
  Company Number: BR-PFIZER INC-2016381409

PATIENT
  Age: 53 Year
  Sex: Male

DRUGS (1)
  1. SUTENT [Suspect]
     Active Substance: SUNITINIB MALATE
     Dosage: 50 MG, TAKING THE MEDICATION FOR 5 DAYS AND STOPPED, THEN HE STARTED EVERYTHING AGAIN
     Route: 048
     Dates: start: 20160801

REACTIONS (9)
  - Haematochezia [Recovered/Resolved]
  - Sluggishness [Recovering/Resolving]
  - Blister [Recovering/Resolving]
  - Asthenia [Recovered/Resolved]
  - Gait disturbance [Recovered/Resolved]
  - Urinary retention [Unknown]
  - Gastrointestinal sounds abnormal [Unknown]
  - Constipation [Unknown]
  - Inappropriate schedule of drug administration [Unknown]

NARRATIVE: CASE EVENT DATE: 2016
